APPROVED DRUG PRODUCT: NAPROXEN
Active Ingredient: NAPROXEN
Strength: 375MG
Dosage Form/Route: TABLET, DELAYED RELEASE;ORAL
Application: A074936 | Product #001
Applicant: ACTAVIS ELIZABETH LLC
Approved: Feb 24, 1998 | RLD: No | RS: No | Type: DISCN